FAERS Safety Report 4685697-3 (Version None)
Quarter: 2005Q2

REPORT INFORMATION
  Report Type: 
  Country: None (occurrence: None)
  Receive Date: 20050608
  Receipt Date: 20050524
  Transmission Date: 20051028
  Serious: Yes (Other)
  Sender: FDA-Public Use
  Company Number: BR-2005-009100

PATIENT
  Age: 22 Year
  Sex: Female

DRUGS (2)
  1. YASMIN [Suspect]
     Dosage: 1 TAB(S), ORAL
     Route: 048
     Dates: start: 20050416
  2. OMEPRAZOLE [Concomitant]

REACTIONS (10)
  - ASTHENIA [None]
  - BLOOD PRESSURE DECREASED [None]
  - BREAST MASS [None]
  - DIPLOPIA [None]
  - DIZZINESS [None]
  - EATING DISORDER [None]
  - HEADACHE [None]
  - MUSCLE RIGIDITY [None]
  - MYALGIA [None]
  - NAUSEA [None]
